FAERS Safety Report 13245064 (Version 1)
Quarter: 2017Q1

REPORT INFORMATION
  Report Type: Other
  Country: GB (occurrence: QA)
  Receive Date: 20170216
  Receipt Date: 20170216
  Transmission Date: 20170428
  Serious: Yes (Other)
  Sender: FDA-Public Use
  Company Number: QA-INTERNATIONAL MEDICATION SYSTEMS, LIMITED-1063240

PATIENT
  Age: 44 Year
  Sex: Male

DRUGS (2)
  1. GLUCOSE 1.36% [Suspect]
     Active Substance: DEXTROSE MONOHYDRATE
     Indication: PERITONEAL DIALYSIS
  2. ICODEXTRIN [Concomitant]
     Active Substance: ICODEXTRIN

REACTIONS (4)
  - Peritoneal dialysis complication [Recovered/Resolved]
  - Pleural effusion [Recovered/Resolved]
  - Systemic leakage [None]
  - Pleuroperitoneal communication [None]
